FAERS Safety Report 5025443-7 (Version None)
Quarter: 2006Q2

REPORT INFORMATION
  Report Type: 
  Country: None (occurrence: None)
  Receive Date: 20060608
  Receipt Date: 20060428
  Transmission Date: 20061013
  Serious: Yes (Hospitalization, Other)
  Sender: FDA-Public Use
  Company Number: 2006058953

PATIENT
  Age: 31 Year
  Sex: Female
  Weight: 65.7716 kg

DRUGS (1)
  1. BEXTRA [Suspect]
     Indication: ARTHRITIS
     Dosage: 10 MG (10 MG, 1 IN 1 D),
     Dates: start: 20040601

REACTIONS (2)
  - ARTERIAL OCCLUSIVE DISEASE [None]
  - CEREBROVASCULAR ACCIDENT [None]
